FAERS Safety Report 21282885 (Version 1)
Quarter: 2022Q3

REPORT INFORMATION
  Report Type: Spontaneous
  Country: US (occurrence: US)
  Receive Date: 20220901
  Receipt Date: 20220901
  Transmission Date: 20221027
  Serious: No
  Sender: FDA-Public Use
  Company Number: US-BRISTOL-MYERS SQUIBB COMPANY-2022-098633

PATIENT
  Age: 86 Year
  Sex: Female

DRUGS (2)
  1. ELIQUIS [Suspect]
     Active Substance: APIXABAN
     Indication: Product used for unknown indication
     Route: 065
  2. IBRANCE [Suspect]
     Active Substance: PALBOCICLIB
     Indication: Product used for unknown indication
     Route: 065

REACTIONS (6)
  - Oral pain [Not Recovered/Not Resolved]
  - Blood blister [Not Recovered/Not Resolved]
  - Full blood count decreased [Unknown]
  - Neutrophil count abnormal [Unknown]
  - Stomatitis [Unknown]
  - Haemoglobin decreased [Unknown]
